FAERS Safety Report 7448088-8 (Version None)
Quarter: 2011Q2

REPORT INFORMATION
  Report Type: 
  Country: None (occurrence: None)
  Receive Date: 20110429
  Receipt Date: 20100802
  Transmission Date: 20111010
  Serious: No
  Sender: FDA-Public Use
  Company Number: US-ASTRAZENECA-2008UW24820

PATIENT
  Age: 73 Year
  Sex: Female
  Weight: 76.7 kg

DRUGS (12)
  1. NEXIUM [Suspect]
     Indication: GASTROOESOPHAGEAL REFLUX DISEASE
     Dosage: 40 MG
     Route: 048
     Dates: start: 20071101
  2. ASPIRIN [Concomitant]
     Indication: PAIN
  3. THYROLAR [Concomitant]
  4. COLCHICINE [Concomitant]
  5. THYROID TAB [Concomitant]
  6. LASIX [Concomitant]
  7. PEPCID [Concomitant]
  8. VITAMIN B [Concomitant]
  9. SUDAFED 12 HOUR [Concomitant]
     Dosage: PRN
  10. MICARDIS [Concomitant]
  11. NAPROXEN [Concomitant]
     Indication: GOUT
  12. LOMOTIL [Concomitant]
     Indication: DIARRHOEA

REACTIONS (5)
  - NAUSEA [None]
  - DRUG DOSE OMISSION [None]
  - BREATH ODOUR [None]
  - DYSGEUSIA [None]
  - LIVER FUNCTION TEST ABNORMAL [None]
